FAERS Safety Report 8119255-5 (Version None)
Quarter: 2012Q1

REPORT INFORMATION
  Report Type: 
  Country: None (occurrence: None)
  Receive Date: 20120207
  Receipt Date: 20120202
  Transmission Date: 20120608
  Serious: Yes (Hospitalization)
  Sender: FDA-Public Use
  Company Number: US-BAYER-2012-011043

PATIENT
  Age: 18 Year
  Sex: Female

DRUGS (1)
  1. NEXAVAR [Suspect]
     Indication: HEPATIC NEOPLASM MALIGNANT
     Dosage: 400 MG, BID
     Dates: start: 20120119, end: 20120125

REACTIONS (6)
  - PYREXIA [None]
  - GLOSSODYNIA [None]
  - RASH [None]
  - CHILLS [None]
  - SWOLLEN TONGUE [None]
  - BLOOD BILIRUBIN INCREASED [None]
